FAERS Safety Report 5230440-2 (Version None)
Quarter: 2007Q1

REPORT INFORMATION
  Report Type: 
  Country: None (occurrence: None)
  Receive Date: 20070201
  Receipt Date: 20070125
  Transmission Date: 20070707
  Serious: Yes (Disabling, Other)
  Sender: FDA-Public Use
  Company Number: 100#03#2007-00185

PATIENT
  Age: 64 Year
  Sex: Male

DRUGS (9)
  1. CITALOPRAM HYDROBROMIDE [Suspect]
     Indication: DEPRESSION
     Dosage: 20 MG
     Route: 048
     Dates: start: 20061106, end: 20061219
  2. VESICARE [Suspect]
     Indication: MICTURITION URGENCY
     Dosage: 5 MG
     Route: 048
     Dates: start: 20061101, end: 20061219
  3. VESICARE [Suspect]
     Indication: POLLAKIURIA
     Dosage: 5 MG
     Route: 048
     Dates: start: 20061101, end: 20061219
  4. ALLOPURINOL (ALLOPURINOL) (ALLOPURINOL) [Concomitant]
  5. ATENOLOL [Concomitant]
  6. BENDROFLUMETHAZIDE (BENDROFLUMETHAZIDE) (BENDRFLUAZIDE) [Concomitant]
  7. CITALOPRAM HYDROBROMIDE [Concomitant]
  8. LANSOPRAZOLE [Concomitant]
  9. WARFARIN (WARFARIN) (WARFARIN) [Concomitant]

REACTIONS (2)
  - PURPURA [None]
  - VASCULITIS [None]
